FAERS Safety Report 9265019 (Version 1)
Quarter: 2013Q2

REPORT INFORMATION
  Report Type: Spontaneous
  Country: US (occurrence: US)
  Receive Date: 20130501
  Receipt Date: 20130501
  Transmission Date: 20140414
  Serious: No
  Sender: FDA-Public Use
  Company Number: US-BAYER-2013-052948

PATIENT
  Age: 78 Year
  Sex: Male

DRUGS (1)
  1. CIPRO [Suspect]
     Dosage: UNK
     Dates: start: 20130403

REACTIONS (2)
  - Arthralgia [None]
  - Arthralgia [None]
